FAERS Safety Report 24448584 (Version 2)
Quarter: 2024Q4

REPORT INFORMATION
  Report Type: Spontaneous
  Country: CA (occurrence: CA)
  Receive Date: 20241017
  Receipt Date: 20241120
  Transmission Date: 20250115
  Serious: Yes (Hospitalization, Other)
  Sender: NOVO NORDISK
  Company Number: None

PATIENT
  Age: 52 Year
  Sex: Female

DRUGS (7)
  1. NORDITROPIN [Suspect]
     Active Substance: SOMATROPIN
     Dosage: 600 MG, QD
     Route: 058
  2. NORDITROPIN [Suspect]
     Active Substance: SOMATROPIN
     Dosage: 450 MG, QD
     Route: 058
  3. NORDITROPIN [Suspect]
     Active Substance: SOMATROPIN
     Dosage: 900 MG, QD
     Route: 058
  4. NORDITROPIN [Suspect]
     Active Substance: SOMATROPIN
     Indication: Growth hormone deficiency
     Dosage: 750 MG, QD
     Route: 058
  5. HYDROCORTISONE [Concomitant]
     Active Substance: HYDROCORTISONE
     Dosage: 1.0 DOSAGE FORMS
  6. ROSUVASTATIN [Concomitant]
     Active Substance: ROSUVASTATIN
     Dosage: 2500.0 MICROGRAM
  7. SYNTHROID [Concomitant]
     Active Substance: LEVOTHYROXINE SODIUM
     Dosage: 1.0 DOSAGE FORM

REACTIONS (2)
  - Head injury [Not Recovered/Not Resolved]
  - Surgery [Not Recovered/Not Resolved]
